FAERS Safety Report 5891859-X (Version None)
Quarter: 2008Q3

REPORT INFORMATION
  Report Type: 
  Country: None (occurrence: None)
  Receive Date: 20080922
  Receipt Date: 20080910
  Transmission Date: 20090109
  Serious: Yes (Other)
  Sender: FDA-Public Use
  Company Number: JP-PFIZER INC-2008076612

PATIENT
  Age: 47 Year
  Sex: Male

DRUGS (1)
  1. XALATAN [Suspect]
     Indication: NORMAL TENSION GLAUCOMA
     Dosage: DAILY DOSE:1DROP
     Route: 047
     Dates: start: 20040701, end: 20060801

REACTIONS (1)
  - CORNEAL DYSTROPHY [None]
